FAERS Safety Report 9886079 (Version 2)
Quarter: 2014Q1

REPORT INFORMATION
  Report Type: Spontaneous
  Country: US (occurrence: US)
  Receive Date: 20140210
  Receipt Date: 20140325
  Transmission Date: 20141002
  Serious: No
  Sender: FDA-Public Use
  Company Number: US-TEVA-461616USA

PATIENT
  Age: 24 Year
  Sex: Female
  Weight: 73.55 kg

DRUGS (3)
  1. PARAGARD 380A [Suspect]
     Indication: CONTRACEPTION
     Route: 015
     Dates: start: 20131230, end: 20140131
  2. ACYCLOVIR [Concomitant]
     Indication: DERMATITIS
  3. AXERT [Concomitant]
     Indication: MIGRAINE

REACTIONS (2)
  - Device expulsion [Recovered/Resolved]
  - Muscle spasms [Recovered/Resolved]
